FAERS Safety Report 9982854 (Version 1)
Quarter: 2014Q1

REPORT INFORMATION
  Report Type: Spontaneous
  Country: US (occurrence: None)
  Receive Date: 20140306
  Receipt Date: 20140306
  Transmission Date: 20141002
  Serious: No
  Sender: FDA-Public Use
  Company Number: None

PATIENT
  Sex: Female

DRUGS (1)
  1. AFINITOR 10MG NOVARTIS [Suspect]
     Indication: BREAST CANCER
     Route: 048
     Dates: start: 201302

REACTIONS (2)
  - Hypertension [None]
  - Headache [None]
